FAERS Safety Report 5277127-8 (Version None)
Quarter: 2007Q1

REPORT INFORMATION
  Report Type: 
  Country: None (occurrence: None)
  Receive Date: 20070322
  Receipt Date: 20070322
  Transmission Date: 20070707
  Serious: Yes (Hospitalization)
  Sender: FDA-Public Use
  Company Number: None

PATIENT
  Age: 36 Year
  Sex: Female
  Weight: 87.5442 kg

DRUGS (2)
  1. VANCOMYCIN [Suspect]
     Indication: WOUND INFECTION STAPHYLOCOCCAL
     Dosage: 1250 MG -MIXED W/NORMAL SALINE EVERY 12 HOURS IV DRIP
     Route: 041
     Dates: start: 20070302, end: 20070308
  2. VANCOMYCIN [Suspect]
     Indication: WOUND INFECTION STAPHYLOCOCCAL
     Dosage: 1500 MG -MIXED W/NORMAL SALINE EVERY 12 HOURS IV DRIP
     Route: 041
     Dates: start: 20070308, end: 20070313

REACTIONS (13)
  - BACK PAIN [None]
  - C-REACTIVE PROTEIN INCREASED [None]
  - CHEST PAIN [None]
  - DRUG INEFFECTIVE [None]
  - DRUG LEVEL DECREASED [None]
  - HEADACHE [None]
  - LYMPH NODE PAIN [None]
  - LYMPHADENOPATHY [None]
  - MYALGIA [None]
  - NECK PAIN [None]
  - PYREXIA [None]
  - RED MAN SYNDROME [None]
  - REFUSAL OF TREATMENT BY PATIENT [None]
